FAERS Safety Report 15289332 (Version 1)
Quarter: 2018Q3

REPORT INFORMATION
  Report Type: Spontaneous
  Country: FR (occurrence: FR)
  Receive Date: 20180817
  Receipt Date: 20180817
  Transmission Date: 20181010
  Serious: Yes (Other)
  Sender: FDA-Public Use
  Company Number: FR-PFIZER INC-2018275245

PATIENT
  Sex: Female

DRUGS (1)
  1. EFFEXOR LP [Suspect]
     Active Substance: VENLAFAXINE HYDROCHLORIDE
     Dosage: UNK
     Dates: start: 201710

REACTIONS (10)
  - Drug dependence [Recovered/Resolved]
  - Dysstasia [Unknown]
  - Drug ineffective [Unknown]
  - Somnolence [Unknown]
  - Drug withdrawal syndrome [Recovered/Resolved]
  - Drug dose omission [Unknown]
  - Lethargy [Unknown]
  - Dizziness [Unknown]
  - Feeling abnormal [Unknown]
  - Nervousness [Unknown]
